FAERS Safety Report 18390626 (Version 11)
Quarter: 2021Q2

REPORT INFORMATION
  Report Type: Report from Study
  Country: BE (occurrence: BE)
  Receive Date: 20201015
  Receipt Date: 20210607
  Transmission Date: 20210717
  Serious: Yes (Life-Threatening, Hospitalization, Disabling, Other)
  Sender: FDA-Public Use
  Company Number: BE-B.I. PHARMACEUTICALS,INC./RIDGEFIELD-2020-BI-019051

PATIENT
  Age: 38 Year
  Sex: Male
  Weight: 66.2 kg

DRUGS (8)
  1. PANTOMED [PANTOPRAZOLE SODIUM SESQUIHYDRATE] [Concomitant]
     Active Substance: PANTOPRAZOLE SODIUM
     Indication: GASTROOESOPHAGEAL REFLUX DISEASE
     Route: 048
     Dates: start: 20191024
  2. AMLODIPINE [Concomitant]
     Active Substance: AMLODIPINE BESYLATE
     Indication: ANGIOPATHY
     Route: 048
     Dates: start: 20170402
  3. MOTILIUM [Concomitant]
     Active Substance: DOMPERIDONE
     Indication: GASTROOESOPHAGEAL REFLUX DISEASE
     Route: 048
     Dates: start: 20200821
  4. PANTOMED [PANTOPRAZOLE SODIUM SESQUIHYDRATE] [Concomitant]
     Active Substance: PANTOPRAZOLE SODIUM
     Indication: OESOPHAGITIS
     Route: 048
     Dates: start: 20130402
  5. LOPERAMIDE [Concomitant]
     Active Substance: LOPERAMIDE
     Indication: DIARRHOEA
     Route: 048
     Dates: start: 20180917
  6. AUGMENTIN [Concomitant]
     Active Substance: AMOXICILLIN\CLAVULANATE POTASSIUM
     Indication: PROPHYLAXIS
     Route: 042
     Dates: start: 20201005, end: 20201007
  7. NINTEDANIB [Suspect]
     Active Substance: NINTEDANIB
     Route: 048
     Dates: start: 20201120, end: 20201212
  8. NINTEDANIB [Suspect]
     Active Substance: NINTEDANIB
     Indication: SYSTEMIC SCLEROSIS PULMONARY
     Route: 048
     Dates: start: 20160719, end: 20201005

REACTIONS (4)
  - Pulmonary hypertension [Recovered/Resolved with Sequelae]
  - Pulmonary embolism [Recovered/Resolved]
  - Pulmonary hypertension [Recovered/Resolved with Sequelae]
  - Interstitial lung disease [Recovered/Resolved with Sequelae]

NARRATIVE: CASE EVENT DATE: 20191015
